FAERS Safety Report 7807066-7 (Version None)
Quarter: 2011Q4

REPORT INFORMATION
  Report Type: 
  Country: None (occurrence: None)
  Receive Date: 20111011
  Receipt Date: 20110929
  Transmission Date: 20120403
  Serious: Yes (Other)
  Sender: FDA-Public Use
  Company Number: FR-PFIZER INC-2011233414

PATIENT
  Age: 36 Year
  Sex: Female

DRUGS (3)
  1. CYTARABINE [Suspect]
     Indication: LEUKAEMIA
     Dosage: 200 MG/M2, 1X/DAY
     Route: 042
     Dates: start: 20100417, end: 20100423
  2. GEMTUZUMAB OZOGAMICIN [Suspect]
     Indication: ACUTE LEUKAEMIA
     Dosage: 60 MG/M2, 1X/DAY
     Route: 042
     Dates: start: 20100421, end: 20100421
  3. DAUNORUBICIN HYDROCHLORIDE [Suspect]
     Indication: ACUTE LEUKAEMIA
     Dosage: 60 MG/M2, 1X/DAY
     Route: 042
     Dates: start: 20100417, end: 20100419

REACTIONS (1)
  - CYTOLYTIC HEPATITIS [None]
